FAERS Safety Report 22628907 (Version 4)
Quarter: 2025Q3

REPORT INFORMATION
  Report Type: Spontaneous
  Country: SA (occurrence: SA)
  Receive Date: 20230622
  Receipt Date: 20250822
  Transmission Date: 20251020
  Serious: Yes (Hospitalization, Other)
  Sender: SANOFI AVENTIS
  Company Number: SA-MLMSERVICE-20230613-4337723-1

PATIENT
  Age: 45 Year
  Sex: Male

DRUGS (7)
  1. METHYLPREDNISOLONE [Suspect]
     Active Substance: METHYLPREDNISOLONE
     Indication: End stage renal disease
     Dates: start: 20220322, end: 20220323
  2. ANTI-THYMOCYTE GLOBULIN (RABBIT) NOS [Suspect]
     Active Substance: LAPINE T-LYMPHOCYTE IMMUNE GLOBULIN
     Indication: End stage renal disease
     Dates: start: 20220322, end: 20220324
  3. PREDNISONE [Suspect]
     Active Substance: PREDNISONE
     Indication: End stage renal disease
     Route: 048
     Dates: start: 202203, end: 20220324
  4. BELATACEPT [Suspect]
     Active Substance: BELATACEPT
     Indication: End stage renal disease
     Dates: start: 20220329, end: 20220329
  5. BELATACEPT [Suspect]
     Active Substance: BELATACEPT
     Dates: start: 20220403, end: 20220403
  6. CYCLOSPORINE [Suspect]
     Active Substance: CYCLOSPORINE
     Indication: End stage renal disease
     Route: 048
     Dates: start: 202203, end: 202203
  7. MYCOPHENOLATE MOFETIL [Suspect]
     Active Substance: MYCOPHENOLATE MOFETIL
     Indication: End stage renal disease
     Dates: start: 202203

REACTIONS (8)
  - Thrombotic microangiopathy [Recovered/Resolved]
  - Renal ischaemia [Recovered/Resolved]
  - Acute kidney injury [Recovered/Resolved]
  - Plasmodium falciparum infection [Recovered/Resolved]
  - Enterococcal infection [Unknown]
  - Lethargy [Recovered/Resolved]
  - Pyrexia [Recovered/Resolved]
  - Dysuria [Recovered/Resolved]

NARRATIVE: CASE EVENT DATE: 20220326
